FAERS Safety Report 5139858-X (Version None)
Quarter: 2006Q4

REPORT INFORMATION
  Report Type: 
  Country: None (occurrence: None)
  Receive Date: 20061025
  Receipt Date: 20061025
  Transmission Date: 20070319
  Serious: No
  Sender: FDA-Public Use
  Company Number: None

PATIENT
  Sex: Female
  Weight: 81.6475 kg

DRUGS (1)
  1. ATIVAN [Suspect]
     Dosage: 2 MG

REACTIONS (7)
  - DRUG EFFECT DECREASED [None]
  - EYE IRRITATION [None]
  - EYE PRURITUS [None]
  - FEELING ABNORMAL [None]
  - INCREASED UPPER AIRWAY SECRETION [None]
  - PAIN [None]
  - POOR QUALITY SLEEP [None]
